FAERS Safety Report 8490143-8 (Version None)
Quarter: 2012Q2

REPORT INFORMATION
  Report Type: 
  Country: None (occurrence: None)
  Receive Date: 20120626
  Receipt Date: 20120618
  Transmission Date: 20120825
  Serious: Yes (Hospitalization)
  Sender: FDA-Public Use
  Company Number: DKLU1082090

PATIENT
  Age: 2 Year
  Sex: Male

DRUGS (6)
  1. TOPAMAX [Concomitant]
  2. CLONAPINE (CLONAZEPAM) [Concomitant]
  3. LAMICTAL [Concomitant]
  4. SABRIL [Suspect]
     Indication: EPILEPSY
     Dosage: 500 MG MILLIGRAM(S), 2 IN 1 D, ORAL
     Route: 048
     Dates: end: 20120517
  5. ZONEGRAN [Concomitant]
  6. KEPPRA [Concomitant]

REACTIONS (2)
  - PNEUMONIA [None]
  - MALAISE [None]
